FAERS Safety Report 23147302 (Version 1)
Quarter: 2023Q4

REPORT INFORMATION
  Report Type: Spontaneous
  Country: JP (occurrence: JP)
  Receive Date: 20231106
  Receipt Date: 20231106
  Transmission Date: 20240110
  Serious: Yes (Hospitalization)
  Sender: FDA-Public Use
  Company Number: JP-002147023-NVSJ2023JP014936

PATIENT
  Age: 63 Year
  Sex: Male

DRUGS (1)
  1. LUTATHERA [Suspect]
     Active Substance: LUTETIUM OXODOTREOTIDE LU-177
     Indication: Neuroendocrine carcinoma
     Dosage: FULL DOSE ADMINISTRATION
     Route: 042

REACTIONS (6)
  - Gait disturbance [Unknown]
  - Neuroendocrine carcinoma [Not Recovered/Not Resolved]
  - Metastases to bone [Not Recovered/Not Resolved]
  - Malignant neoplasm progression [Not Recovered/Not Resolved]
  - Pain [Unknown]
  - C-reactive protein increased [Unknown]
